FAERS Safety Report 10869570 (Version 1)
Quarter: 2015Q1

REPORT INFORMATION
  Report Type: Spontaneous
  Country: US (occurrence: US)
  Receive Date: 20150226
  Receipt Date: 20150226
  Transmission Date: 20150721
  Serious: No
  Sender: FDA-Public Use
  Company Number: US-GLAXOSMITHKLINE-US2015005387

PATIENT
  Sex: Female

DRUGS (4)
  1. LITHIUM [Concomitant]
     Active Substance: LITHIUM CARBONATE
  2. LAMICTAL [Suspect]
     Active Substance: LAMOTRIGINE
     Indication: BIPOLAR II DISORDER
     Dosage: 150 MG, QD
     Route: 048
     Dates: start: 2004
  3. AMBIEN [Concomitant]
     Active Substance: ZOLPIDEM TARTRATE
  4. SEROQUEL [Concomitant]
     Active Substance: QUETIAPINE FUMARATE

REACTIONS (2)
  - Drug ineffective [Not Recovered/Not Resolved]
  - Insomnia [Recovering/Resolving]

NARRATIVE: CASE EVENT DATE: 2004
